FAERS Safety Report 6679488-1 (Version None)
Quarter: 2010Q2

REPORT INFORMATION
  Report Type: 
  Country: None (occurrence: None)
  Receive Date: 20100413
  Receipt Date: 20100406
  Transmission Date: 20101027
  Serious: Yes (Hospitalization)
  Sender: FDA-Public Use
  Company Number: US-RB-006398-10

PATIENT
  Age: 39 Year
  Sex: Male

DRUGS (4)
  1. SUBUTEX [Suspect]
     Route: 060
     Dates: start: 20080901
  2. SUBUTEX [Suspect]
     Indication: PAIN
     Route: 060
     Dates: start: 20080901
  3. SUBOXONE [Suspect]
     Route: 060
     Dates: start: 20080623, end: 20080901
  4. SUBOXONE [Suspect]
     Indication: PAIN
     Route: 060
     Dates: start: 20080623, end: 20080901

REACTIONS (5)
  - LIMB INJURY [None]
  - MYOCARDIAL INFARCTION [None]
  - NAUSEA [None]
  - PHLEBITIS [None]
  - PULMONARY THROMBOSIS [None]
